FAERS Safety Report 7984465-4 (Version None)
Quarter: 2011Q4

REPORT INFORMATION
  Report Type: 
  Country: None (occurrence: None)
  Receive Date: 20111216
  Receipt Date: 20111208
  Transmission Date: 20120403
  Serious: Yes (Hospitalization)
  Sender: FDA-Public Use
  Company Number: FR-UCBSA-043368

PATIENT
  Age: 56 Year
  Sex: Female

DRUGS (6)
  1. KEPPRA [Suspect]
     Indication: EPILEPSY
     Route: 048
     Dates: start: 20110815, end: 20110911
  2. MUPHORAN [Suspect]
     Dosage: 165 MG BY COURSE,FIRST COURSE
     Route: 042
     Dates: start: 20110818, end: 20110818
  3. VEMURAFENIB [Suspect]
     Indication: METASTATIC MALIGNANT MELANOMA
     Dosage: 4 TABLETS IN THE MORNING AND IN THE EVENING
     Route: 048
     Dates: start: 20110829, end: 20110910
  4. URBANYL [Suspect]
     Indication: EPILEPSY
     Dosage: DAILY DOSE: 5 MG
     Route: 048
     Dates: start: 20110815, end: 20110923
  5. MUPHORAN [Suspect]
     Indication: METASTATIC MALIGNANT MELANOMA
     Dosage: 165 MG BY COURSE,THIRD COURSE
     Route: 042
     Dates: start: 20110901, end: 20110901
  6. MUPHORAN [Suspect]
     Dosage: 165 MG BY COURSE ,SECOND COURSE
     Route: 042
     Dates: start: 20110825, end: 20110825

REACTIONS (4)
  - THROMBOCYTOPENIA [None]
  - RASH MACULO-PAPULAR [None]
  - PYREXIA [None]
  - LEUKOPENIA [None]
